FAERS Safety Report 16045977 (Version 1)
Quarter: 2019Q1

REPORT INFORMATION
  Report Type: Spontaneous
  Country: KR (occurrence: KR)
  Receive Date: 20190307
  Receipt Date: 20190307
  Transmission Date: 20190418
  Serious: Yes (Hospitalization)
  Sender: FDA-Public Use
  Company Number: KR-NOVOPROD-649099

PATIENT
  Sex: Female

DRUGS (1)
  1. NOVORAPID [Suspect]
     Active Substance: INSULIN ASPART
     Indication: DIABETES MELLITUS
     Dosage: 19 IU, QD (7-6-6IU TID)
     Route: 058

REACTIONS (4)
  - Renal disorder [Unknown]
  - Hepatitis B [Unknown]
  - Injection site extravasation [Unknown]
  - Spinal operation [Unknown]
